FAERS Safety Report 5214974-2 (Version None)
Quarter: 2007Q1

REPORT INFORMATION
  Report Type: 
  Country: None (occurrence: None)
  Receive Date: 20070122
  Receipt Date: 20061214
  Transmission Date: 20070707
  Serious: Yes (Hospitalization)
  Sender: FDA-Public Use
  Company Number: FR-PFIZER INC-033-1343-M0200047

PATIENT
  Sex: Male

DRUGS (13)
  1. VIRACEPT [Suspect]
     Indication: HIV INFECTION
     Dosage: TEXT:UNKNOWN-FREQ:UNKNOWN
     Route: 064
  2. BACTRIM [Suspect]
     Indication: ILL-DEFINED DISORDER
     Dosage: TEXT:UNKNOWN-FREQ:UNKNOWN
     Route: 064
  3. RETROVIR [Suspect]
     Indication: HIV INFECTION
     Dosage: TEXT:UNKNOWN-FREQ:UNKNOWN
     Route: 042
     Dates: start: 20020202, end: 20020202
  4. RETROVIR [Suspect]
     Indication: INFECTION PROPHYLAXIS
  5. ZERIT [Suspect]
     Indication: HIV INFECTION
     Dosage: TEXT:UNKNOWN-FREQ:UNKNOWN
     Route: 064
  6. ZERIT [Suspect]
     Indication: INFECTION PROPHYLAXIS
     Dosage: TEXT:UNKNOWN-FREQ:UNKNOWN
     Route: 064
  7. EPIVIR [Suspect]
     Indication: HIV INFECTION
     Dosage: DAILY DOSE:150MG-FREQ:UNKNOWN
     Route: 064
  8. PULMICORT [Concomitant]
     Dosage: TEXT:UNKNOWN-FREQ:UNKNOWN
     Route: 065
  9. BRICANYL [Concomitant]
     Dosage: TEXT:UNKNOWN-FREQ:UNKNOWN
     Route: 065
  10. SALBUTAMOL [Concomitant]
     Dosage: TEXT:UNKNOWN-FREQ:UNKNOWN
     Route: 065
  11. BECOTIDE [Concomitant]
     Dosage: TEXT:UNKNOWN-FREQ:UNKNOWN
     Route: 065
  12. GYNO-PEVARYL [Concomitant]
     Dosage: TEXT:UNKNOWN-FREQ:UNKNOWN
     Route: 065
  13. VENTOLIN [Concomitant]

REACTIONS (13)
  - AFFECT LABILITY [None]
  - BLOOD CREATINE PHOSPHOKINASE INCREASED [None]
  - CARDIAC MURMUR [None]
  - FOETAL DISTRESS SYNDROME [None]
  - HYPERLACTACIDAEMIA [None]
  - HYPERTONIA [None]
  - LABORATORY TEST ABNORMAL [None]
  - LIPASE INCREASED [None]
  - LIVER FUNCTION TEST ABNORMAL [None]
  - THROMBOCYTHAEMIA [None]
  - TREMOR NEONATAL [None]
  - VASCULITIS CEREBRAL [None]
  - VISUAL DISTURBANCE [None]
